FAERS Safety Report 8063988-6 (Version None)
Quarter: 2012Q1

REPORT INFORMATION
  Report Type: 
  Country: None (occurrence: None)
  Receive Date: 20120123
  Receipt Date: 20120118
  Transmission Date: 20120608
  Serious: Yes (Hospitalization, Other)
  Sender: FDA-Public Use
  Company Number: PHHY2012BE004693

PATIENT
  Age: 64 Year
  Sex: Male

DRUGS (5)
  1. PROLOPA [Concomitant]
     Indication: PROGRESSIVE SUPRANUCLEAR PALSY
     Dosage: 100 MG, DAILY
  2. STALEVO 100 [Suspect]
     Dosage: 150 MG IN THE MORNING AND 3X50 MG IN AFTERNOON
     Route: 048
     Dates: start: 20111201
  3. PRAMIPEXOLE DIHYDROCHLORIDE [Concomitant]
     Indication: PROGRESSIVE SUPRANUCLEAR PALSY
     Dosage: 100 MG, DAILY
  4. STALEVO 100 [Suspect]
     Indication: PROGRESSIVE SUPRANUCLEAR PALSY
     Dosage: 150 MG, 5 TIMES DAILY
     Dates: start: 20090101
  5. ANALGESICS [Concomitant]
     Indication: PROGRESSIVE SUPRANUCLEAR PALSY

REACTIONS (3)
  - OBSESSIVE-COMPULSIVE PERSONALITY DISORDER [None]
  - HYPOKINESIA [None]
  - AGGRESSION [None]
